FAERS Safety Report 10991710 (Version 1)
Quarter: 2015Q2

REPORT INFORMATION
  Report Type: Spontaneous
  Country: JP (occurrence: JP)
  Receive Date: 20150406
  Receipt Date: 20150406
  Transmission Date: 20150821
  Serious: Yes (Other)
  Sender: FDA-Public Use
  Company Number: PHHY2015JP039454

PATIENT

DRUGS (5)
  1. CYCLOPHOSPHAMIDE. [Suspect]
     Active Substance: CYCLOPHOSPHAMIDE
     Indication: THYROID B-CELL LYMPHOMA
     Dosage: 750 MG/M2, UNK
     Route: 065
  2. RITUXIMAB [Suspect]
     Active Substance: RITUXIMAB
     Indication: THYROID B-CELL LYMPHOMA
     Dosage: 375 MG/M2, UNK
     Route: 065
  3. VINCRISTINE [Suspect]
     Active Substance: VINCRISTINE
     Indication: THYROID B-CELL LYMPHOMA
     Dosage: 1.4 MG/M2, UNK
     Route: 065
  4. ADRIAMYCIN [Suspect]
     Active Substance: DOXORUBICIN HYDROCHLORIDE
     Indication: THYROID B-CELL LYMPHOMA
     Dosage: 40 MG/M2, UNK
     Route: 065
  5. PREDNISOLONE. [Suspect]
     Active Substance: PREDNISOLONE
     Indication: THYROID B-CELL LYMPHOMA
     Dosage: 100 MG, UNK
     Route: 065

REACTIONS (2)
  - Performance status decreased [Unknown]
  - Interstitial lung disease [Unknown]
